FAERS Safety Report 17438559 (Version 2)
Quarter: 2021Q4

REPORT INFORMATION
  Report Type: Other
  Country: US (occurrence: None)
  Receive Date: 20200220
  Receipt Date: 20211206
  Transmission Date: 20220304
  Serious: Yes (Other)
  Sender: FDA-Public Use
  Company Number: US-ROCHE-2547770

PATIENT
  Sex: Female
  Weight: 67.192 kg

DRUGS (11)
  1. OCREVUS [Suspect]
     Active Substance: OCRELIZUMAB
     Indication: Relapsing multiple sclerosis
     Route: 042
     Dates: start: 20170607, end: 20170621
  2. OCREVUS [Suspect]
     Active Substance: OCRELIZUMAB
     Dosage: MOST RECENT DOSES OF OCRELIZUMAB: 07/AUG/2018, 14/AUG/2018 AND 14/FEB/2019
     Route: 042
     Dates: start: 20171207
  3. TIZANIDINE HYDROCHLORIDE [Concomitant]
     Active Substance: TIZANIDINE HYDROCHLORIDE
     Indication: Multiple sclerosis
     Route: 048
  4. CARBAMAZEPINE [Concomitant]
     Active Substance: CARBAMAZEPINE
     Indication: Multiple sclerosis
     Route: 048
  5. GABAPENTIN [Concomitant]
     Active Substance: GABAPENTIN
     Indication: Multiple sclerosis
     Route: 048
  6. CYMBALTA [Concomitant]
     Active Substance: DULOXETINE HYDROCHLORIDE
     Indication: Multiple sclerosis
     Dosage: 2 CAPSULES DAILY
     Route: 048
  7. PRIVIGEN [Concomitant]
     Active Substance: HUMAN IMMUNOGLOBULIN G
     Indication: Hypogammaglobulinaemia
     Route: 042
  8. DIPHENHYDRAMINE [Concomitant]
     Active Substance: DIPHENHYDRAMINE
     Indication: Premedication
     Route: 042
  9. ACETAMINOPHEN [Concomitant]
     Active Substance: ACETAMINOPHEN
     Indication: Premedication
     Route: 048
  10. METHYLPREDNISOLONE [Concomitant]
     Active Substance: METHYLPREDNISOLONE
     Indication: Premedication
     Route: 042
  11. BACLOFEN [Concomitant]
     Active Substance: BACLOFEN
     Indication: Muscle spasms
     Route: 048

REACTIONS (8)
  - Ankle fracture [Unknown]
  - Urinary tract infection [Unknown]
  - Meningioma [Unknown]
  - Neoplasm [Unknown]
  - Sinusitis [Unknown]
  - Intervertebral disc protrusion [Unknown]
  - Hypogammaglobulinaemia [Unknown]
  - Off label use [Unknown]
